FAERS Safety Report 6348896-0 (Version None)
Quarter: 2009Q3

REPORT INFORMATION
  Report Type: 
  Country: None (occurrence: None)
  Receive Date: 20090911
  Receipt Date: 20090831
  Transmission Date: 20100115
  Serious: Yes (Other)
  Sender: FDA-Public Use
  Company Number: JP-PFIZER INC-2009260922

PATIENT
  Age: 3 Year

DRUGS (2)
  1. GENOTROPIN [Suspect]
     Indication: PRADER-WILLI SYNDROME
     Dosage: 0.2 MG, 1X/DAY
     Route: 058
     Dates: start: 20090717
  2. THYRADIN S [Concomitant]
     Indication: CONGENITAL HYPOTHYROIDISM
     Dosage: 40 UG
     Route: 048
     Dates: start: 20060915

REACTIONS (1)
  - BLOOD ALKALINE PHOSPHATASE INCREASED [None]
